FAERS Safety Report 9272508 (Version 1)
Quarter: 2013Q2

REPORT INFORMATION
  Report Type: Spontaneous
  Country: US (occurrence: US)
  Receive Date: 20130506
  Receipt Date: 20130506
  Transmission Date: 20140414
  Serious: No
  Sender: FDA-Public Use
  Company Number: US-ASTRAZENECA-2012SE81243

PATIENT
  Age: 56 Year
  Sex: Female

DRUGS (6)
  1. PRILOSEC OTC [Suspect]
     Indication: DYSPEPSIA
     Route: 048
     Dates: start: 20121002, end: 20121002
  2. ATIVAN [Concomitant]
  3. LEXAPRO [Concomitant]
  4. ARMOUR THYROID [Concomitant]
  5. TESTOSTERONE [Concomitant]
  6. PROGESTERONE [Concomitant]

REACTIONS (2)
  - Headache [Not Recovered/Not Resolved]
  - Inappropriate schedule of drug administration [Unknown]
